FAERS Safety Report 9204760 (Version 3)
Quarter: 2013Q3

REPORT INFORMATION
  Report Type: Spontaneous
  Country: RO (occurrence: RO)
  Receive Date: 20130402
  Receipt Date: 20130709
  Transmission Date: 20140515
  Serious: Yes (Other)
  Sender: FDA-Public Use
  Company Number: RO-UCBSA-081742

PATIENT
  Age: 37 Year
  Sex: Female
  Weight: 53 kg

DRUGS (8)
  1. CIMZIA [Suspect]
     Indication: RHEUMATOID ARTHRITIS
     Route: 058
     Dates: start: 201208, end: 20130227
  2. METHOTREXATE [Suspect]
     Indication: RHEUMATOID ARTHRITIS
     Route: 058
     Dates: start: 199504
  3. METHOTREXATE [Suspect]
     Indication: RHEUMATOID ARTHRITIS
     Dosage: 10 MG PER WEEK
     Route: 058
  4. BONVIVA [Concomitant]
     Indication: OSTEOPOROSIS
     Route: 042
     Dates: start: 200909
  5. BONVIVA [Concomitant]
     Indication: OSTEOPOROSIS
     Dosage: 150 MG, 1 TABLET/ MONTH
  6. ALPHA D3 [Concomitant]
     Dosage: 1MCG/DAY
     Route: 048
     Dates: start: 200909
  7. ALPHA D3 [Concomitant]
     Dosage: 0.5 MG, 1 TABLET/DAY
  8. FOLIC ACID [Concomitant]

REACTIONS (2)
  - Abortion induced [Unknown]
  - Pregnancy [Recovered/Resolved]
